FAERS Safety Report 20131557 (Version 5)
Quarter: 2022Q1

REPORT INFORMATION
  Report Type: Report from Study
  Country: US (occurrence: US)
  Receive Date: 20211130
  Receipt Date: 20220331
  Transmission Date: 20220423
  Serious: Yes (Hospitalization, Other)
  Sender: FDA-Public Use
  Company Number: US-TAKEDA-2021TUS071651

PATIENT
  Age: 79 Year
  Sex: Female
  Weight: 45 kg

DRUGS (9)
  1. MOBOCERTINIB [Suspect]
     Active Substance: MOBOCERTINIB
     Indication: Lung carcinoma cell type unspecified stage IV
     Dosage: 160 MILLIGRAM, QD
     Route: 065
     Dates: start: 20211105
  2. MOBOCERTINIB [Suspect]
     Active Substance: MOBOCERTINIB
     Indication: Lung neoplasm malignant
     Dosage: 40 MILLIGRAM, QD
     Route: 065
  3. MOBOCERTINIB [Suspect]
     Active Substance: MOBOCERTINIB
     Dosage: 120 MILLIGRAM, QD
     Route: 065
  4. MOBOCERTINIB [Suspect]
     Active Substance: MOBOCERTINIB
     Dosage: 80 MILLIGRAM, QD
     Route: 065
  5. PREDNISONE [Concomitant]
     Active Substance: PREDNISONE
     Dosage: 5 MILLIGRAM
     Route: 065
  6. SYNTHROID [Concomitant]
     Active Substance: LEVOTHYROXINE SODIUM
     Dosage: UNK
     Route: 065
  7. IMODIUM [Concomitant]
     Active Substance: LOPERAMIDE HYDROCHLORIDE
     Indication: Diarrhoea
     Dosage: UNK
     Route: 065
  8. VITAMIN D3 [Concomitant]
     Active Substance: CHOLECALCIFEROL
     Dosage: 2000 MICROGRAM, QD
     Route: 065
  9. PROBIOTICS NOS [Concomitant]
     Active Substance: PROBIOTICS NOS
     Route: 065

REACTIONS (26)
  - Dehydration [Not Recovered/Not Resolved]
  - Diarrhoea [Not Recovered/Not Resolved]
  - Metastases to lung [Unknown]
  - Oesophageal ulcer [Unknown]
  - Weight decreased [Unknown]
  - Abdominal pain upper [Unknown]
  - Dry mouth [Unknown]
  - Vomiting [Unknown]
  - Decreased appetite [Unknown]
  - Rash [Unknown]
  - Drug intolerance [Unknown]
  - Constipation [Unknown]
  - Skin disorder [Unknown]
  - Fatigue [Unknown]
  - Pharyngeal swelling [Unknown]
  - Throat irritation [Unknown]
  - Oropharyngeal pain [Unknown]
  - Dyspnoea [Unknown]
  - Tongue ulceration [Unknown]
  - Dry skin [Unknown]
  - Hypersensitivity [Unknown]
  - Thyroid hormones increased [Unknown]
  - Abdominal distension [Unknown]
  - Chest pain [Unknown]
  - Bowel movement irregularity [Unknown]
  - Incorrect dose administered [Unknown]

NARRATIVE: CASE EVENT DATE: 20211116
